FAERS Safety Report 9465314 (Version 2)
Quarter: 2013Q4

REPORT INFORMATION
  Report Type: Spontaneous
  Country: US (occurrence: US)
  Receive Date: 20130820
  Receipt Date: 20131021
  Transmission Date: 20140711
  Serious: No
  Sender: FDA-Public Use
  Company Number: US-B.I. PHARMACEUTICALS,INC./RIDGEFIELD-2013-BI-24450BP

PATIENT
  Age: 63 Year
  Sex: Female

DRUGS (5)
  1. SPIRIVA [Suspect]
     Indication: CHRONIC OBSTRUCTIVE PULMONARY DISEASE
     Dosage: 18 MCG
     Route: 055
     Dates: start: 2006, end: 201306
  2. PROAIR [Concomitant]
     Route: 055
  3. ADVAIR [Concomitant]
     Route: 055
  4. ALBUTEROL [Concomitant]
     Route: 055
  5. MONTELUKAST [Concomitant]
     Route: 048

REACTIONS (4)
  - Dyspnoea [Recovered/Resolved]
  - Increased viscosity of bronchial secretion [Recovered/Resolved]
  - Sputum retention [Recovered/Resolved]
  - Cough [Recovered/Resolved]
